FAERS Safety Report 18187116 (Version 1)
Quarter: 2020Q3

REPORT INFORMATION
  Report Type: Spontaneous
  Country: US (occurrence: US)
  Receive Date: 20200823
  Receipt Date: 20200823
  Transmission Date: 20201103
  Serious: Yes (Hospitalization)
  Sender: FDA-Public Use
  Company Number: None

PATIENT
  Sex: Male
  Weight: 95.55 kg

DRUGS (2)
  1. TAXOL [Suspect]
     Active Substance: PACLITAXEL
     Indication: CLINICAL TRIAL PARTICIPANT
     Dates: end: 20200731
  2. IFOSFAMIDE (109724) [Suspect]
     Active Substance: IFOSFAMIDE
     Indication: CLINICAL TRIAL PARTICIPANT
     Dates: end: 20200731

REACTIONS (1)
  - Seizure [None]

NARRATIVE: CASE EVENT DATE: 20200811
